FAERS Safety Report 6239315-3 (Version None)
Quarter: 2009Q2

REPORT INFORMATION
  Report Type: 
  Country: None (occurrence: None)
  Receive Date: 20090622
  Receipt Date: 20090610
  Transmission Date: 20091009
  Serious: Yes (Hospitalization)
  Sender: FDA-Public Use
  Company Number: PHHY2009JP22987

PATIENT
  Age: 77 Year
  Sex: Female

DRUGS (1)
  1. VOLTAREN [Suspect]
     Indication: BACK PAIN
     Dosage: 25 MG/DAY
     Route: 054
     Dates: start: 20090607, end: 20090608

REACTIONS (4)
  - CHROMATURIA [None]
  - HAEMOLYTIC ANAEMIA [None]
  - MALAISE [None]
  - PLATELET COUNT DECREASED [None]
